FAERS Safety Report 13851288 (Version 1)
Quarter: 2017Q3

REPORT INFORMATION
  Report Type: Spontaneous
  Country: US (occurrence: US)
  Receive Date: 20170809
  Receipt Date: 20170809
  Transmission Date: 20171127
  Serious: No
  Sender: FDA-Public Use
  Company Number: US-ELI_LILLY_AND_COMPANY-US201707007374

PATIENT
  Sex: Male

DRUGS (3)
  1. TYSABRI [Concomitant]
     Active Substance: NATALIZUMAB
     Indication: MULTIPLE SCLEROSIS
  2. CIALIS [Suspect]
     Active Substance: TADALAFIL
     Indication: BLADDER DISORDER
     Dosage: 5 MG, DAILY
     Route: 048
  3. CIALIS [Suspect]
     Active Substance: TADALAFIL
     Dosage: 5 MG, BID
     Route: 048

REACTIONS (7)
  - Urine flow decreased [Not Recovered/Not Resolved]
  - Urinary hesitation [Not Recovered/Not Resolved]
  - Scrotal disorder [Not Recovered/Not Resolved]
  - Off label use [Unknown]
  - Micturition urgency [Not Recovered/Not Resolved]
  - Bladder disorder [Not Recovered/Not Resolved]
  - Inappropriate schedule of drug administration [Unknown]
